FAERS Safety Report 17692390 (Version 1)
Quarter: 2020Q2

REPORT INFORMATION
  Report Type: Spontaneous
  Country: US (occurrence: US)
  Receive Date: 20200421
  Receipt Date: 20200421
  Transmission Date: 20200714
  Serious: No
  Sender: FDA-Public Use
  Company Number: None

PATIENT
  Sex: Female

DRUGS (1)
  1. ALBUTEROL MDI [Suspect]
     Active Substance: ALBUTEROL

REACTIONS (1)
  - Heart rate increased [None]
